FAERS Safety Report 7204140-3 (Version None)
Quarter: 2010Q4

REPORT INFORMATION
  Report Type: 
  Country: None (occurrence: None)
  Receive Date: 20101230
  Receipt Date: 20101224
  Transmission Date: 20110411
  Serious: Yes (Other)
  Sender: FDA-Public Use
  Company Number: AU-ROCHE-740336

PATIENT
  Sex: Female
  Weight: 95 kg

DRUGS (4)
  1. HERCEPTIN [Suspect]
     Indication: BREAST CANCER METASTATIC
     Dosage: FORM: INFUSION
     Route: 042
     Dates: start: 20100316, end: 20101115
  2. HERCEPTIN [Suspect]
     Route: 042
  3. ADRIAMYCIN PFS [Concomitant]
  4. ABRAXANE [Concomitant]

REACTIONS (7)
  - BLISTER [None]
  - DYSPNOEA [None]
  - LACRIMATION INCREASED [None]
  - LETHARGY [None]
  - MALAISE [None]
  - RHINORRHOEA [None]
  - TIC [None]
